FAERS Safety Report 17455478 (Version 1)
Quarter: 2020Q1

REPORT INFORMATION
  Report Type: Spontaneous
  Country: BG (occurrence: BG)
  Receive Date: 20200225
  Receipt Date: 20200225
  Transmission Date: 20200409
  Serious: Yes (Hospitalization, Other)
  Sender: FDA-Public Use
  Company Number: BG-AMGEN-BGRSP2020028572

PATIENT
  Age: 32 Year
  Sex: Male

DRUGS (9)
  1. CYTOCRISTINE [Concomitant]
     Indication: CUTANEOUS T-CELL LYMPHOMA
     Dosage: UNK
     Dates: start: 2017
  2. PROCARBAZINE [Concomitant]
     Active Substance: PROCARBAZINE
     Indication: CUTANEOUS T-CELL LYMPHOMA
     Dosage: UNK
     Dates: start: 2017
  3. ONDANSETRON [Concomitant]
     Active Substance: ONDANSETRON
     Indication: CUTANEOUS T-CELL LYMPHOMA
     Dosage: UNK
     Dates: start: 2017
  4. ETOPOSIDE. [Concomitant]
     Active Substance: ETOPOSIDE
     Indication: CUTANEOUS T-CELL LYMPHOMA
     Dosage: UNK
     Dates: start: 2017
  5. METHYLPREDNISOLONE. [Concomitant]
     Active Substance: METHYLPREDNISOLONE
     Indication: CUTANEOUS T-CELL LYMPHOMA
     Dosage: UNK
     Dates: start: 2017
  6. PEGFILGRASTIM [Suspect]
     Active Substance: PEGFILGRASTIM
     Indication: CUTANEOUS T-CELL LYMPHOMA
     Dosage: UNK
     Route: 065
     Dates: start: 2017
  7. EPIRUBICIN [Concomitant]
     Active Substance: EPIRUBICIN
     Indication: CUTANEOUS T-CELL LYMPHOMA
     Dosage: UNK
     Dates: start: 2017
  8. BLEOMYCIN [Concomitant]
     Active Substance: BLEOMYCIN SULFATE
     Indication: CUTANEOUS T-CELL LYMPHOMA
     Dosage: UNK
     Dates: start: 2017
  9. CYCLOPHOSPHAMIDE. [Concomitant]
     Active Substance: CYCLOPHOSPHAMIDE
     Indication: CUTANEOUS T-CELL LYMPHOMA
     Dosage: UNK
     Dates: start: 2017

REACTIONS (5)
  - Off label use [Unknown]
  - Hospitalisation [Unknown]
  - Cutaneous T-cell lymphoma [Unknown]
  - Sarcoidosis [Unknown]
  - Lymphadenopathy [Unknown]

NARRATIVE: CASE EVENT DATE: 2017
